FAERS Safety Report 4356218-X (Version None)
Quarter: 2004Q2

REPORT INFORMATION
  Report Type: 
  Country: None (occurrence: None)
  Receive Date: 20040511
  Receipt Date: 20040420
  Transmission Date: 20050107
  Serious: Yes (Other)
  Sender: FDA-Public Use
  Company Number: AU-MERCK-0405AUS00017

PATIENT
  Age: 65 Year
  Sex: Female

DRUGS (2)
  1. FOSAMAX [Suspect]
     Route: 048
     Dates: start: 20021026, end: 20021127
  2. ASPIRIN [Concomitant]
     Route: 048
     Dates: start: 20021021

REACTIONS (8)
  - ANGIONEUROTIC OEDEMA [None]
  - ARTHRITIS [None]
  - EYELID OEDEMA [None]
  - JOINT SWELLING [None]
  - OEDEMA PERIPHERAL [None]
  - PAIN [None]
  - PERIORBITAL OEDEMA [None]
  - SENSATION OF FOREIGN BODY [None]
